FAERS Safety Report 15003357 (Version 2)
Quarter: 2018Q2

REPORT INFORMATION
  Report Type: Spontaneous
  Country: JP (occurrence: JP)
  Receive Date: 20180613
  Receipt Date: 20180626
  Transmission Date: 20180711
  Serious: Yes (Other)
  Sender: FDA-Public Use
  Company Number: JP-TEVA-2018-JP-904279

PATIENT
  Age: 8 Decade
  Sex: Male

DRUGS (2)
  1. TS-1 [Suspect]
     Active Substance: GIMERACIL\OTERACIL\TEGAFUR
     Indication: ADENOCARCINOMA GASTRIC
     Dosage: ON DAY 1 THROUGH 21
     Route: 065
  2. CISPLATIN. [Suspect]
     Active Substance: CISPLATIN
     Indication: ADENOCARCINOMA GASTRIC
     Dosage: ON DAY 8
     Route: 065

REACTIONS (4)
  - Abdominal abscess [Unknown]
  - Peritonitis [Recovered/Resolved]
  - Gastric perforation [Recovered/Resolved]
  - Tumour perforation [Recovered/Resolved]
